FAERS Safety Report 7438029-1 (Version None)
Quarter: 2011Q2

REPORT INFORMATION
  Report Type: 
  Country: None (occurrence: None)
  Receive Date: 20110426
  Receipt Date: 20110419
  Transmission Date: 20111010
  Serious: Yes (Hospitalization, Other)
  Sender: FDA-Public Use
  Company Number: FR-GENZYME-THYM-1002384

PATIENT
  Sex: Male

DRUGS (9)
  1. THYMOGLOBULIN [Suspect]
     Indication: REFRACTORY ANAEMIA
     Dosage: UNK
     Route: 042
     Dates: start: 20110215
  2. FLUDARA [Suspect]
     Indication: REFRACTORY ANAEMIA
  3. BUSILVEX [Suspect]
     Indication: PRODUCT USED FOR UNKNOWN INDICATION
     Dosage: 0.8 MG/KG, QID
     Route: 042
     Dates: start: 20110211, end: 20110212
  4. THYMOGLOBULIN [Suspect]
     Indication: BONE MARROW CONDITIONING REGIMEN
     Dosage: 2.5 MG/KG, QD
     Route: 042
     Dates: start: 20110213, end: 20110214
  5. FLUDARA [Suspect]
     Indication: BONE MARROW CONDITIONING REGIMEN
     Dosage: 30 MG/M2, QD
     Route: 042
     Dates: start: 20110210, end: 20110214
  6. ZOPHREN [Suspect]
     Indication: PRODUCT USED FOR UNKNOWN INDICATION
     Dosage: UNK
     Route: 042
     Dates: start: 20110210, end: 20110214
  7. VIDAZA [Concomitant]
     Indication: PRODUCT USED FOR UNKNOWN INDICATION
     Dosage: 75 MG/M2, UNK
     Route: 065
     Dates: start: 20100412
  8. SOLU-MEDROL [Concomitant]
     Indication: PRODUCT USED FOR UNKNOWN INDICATION
     Route: 065
  9. SANDIMMUNE [Suspect]
     Indication: PRODUCT USED FOR UNKNOWN INDICATION
     Dosage: UNK
     Route: 042
     Dates: start: 20110210

REACTIONS (5)
  - CHOLESTASIS [None]
  - HEPATITIS ACUTE [None]
  - CYTOLYTIC HEPATITIS [None]
  - CHILLS [None]
  - PYREXIA [None]
